FAERS Safety Report 8373774-5 (Version None)
Quarter: 2012Q2

REPORT INFORMATION
  Report Type: 
  Country: None (occurrence: None)
  Receive Date: 20120521
  Receipt Date: 20120515
  Transmission Date: 20120825
  Serious: Yes (Other)
  Sender: FDA-Public Use
  Company Number: PHHY2012CA012412

PATIENT
  Sex: Female

DRUGS (2)
  1. AFINITOR [Suspect]
     Indication: PANCREATIC NEUROENDOCRINE TUMOUR
     Dosage: 10 MG, EVERY DAY
     Route: 048
     Dates: start: 20110108, end: 20120107
  2. SANDOSTATIN LAR [Suspect]
     Indication: PANCREATIC NEUROENDOCRINE TUMOUR
     Dosage: 50 MG, EVERY 4 WEEKS
     Route: 030
     Dates: start: 20110308

REACTIONS (7)
  - ASTHENIA [None]
  - MALAISE [None]
  - DYSPNOEA [None]
  - PULMONARY OEDEMA [None]
  - FATIGUE [None]
  - CARDIAC FAILURE [None]
  - LUNG DISORDER [None]
